FAERS Safety Report 17949786 (Version 7)
Quarter: 2022Q2

REPORT INFORMATION
  Report Type: Spontaneous
  Country: US (occurrence: US)
  Receive Date: 20200626
  Receipt Date: 20220510
  Transmission Date: 20220721
  Serious: Yes (Hospitalization)
  Sender: FDA-Public Use
  Company Number: US-PFIZER INC-2020246154

PATIENT
  Age: 71 Year
  Sex: Female
  Weight: 58.97 kg

DRUGS (3)
  1. IBRANCE [Suspect]
     Active Substance: PALBOCICLIB
     Indication: Breast cancer stage IV
     Dosage: 75 MG CYCLIC (75 MG TABLET ONCE A DAY FOR 21 DAYS; 7 DAYS OFF, REPEAT EVERY 28 DAYS)
     Route: 048
     Dates: start: 20200618
  2. IBRANCE [Suspect]
     Active Substance: PALBOCICLIB
     Dosage: 75 MG
     Dates: start: 20210210
  3. LETROZOLE [Concomitant]
     Active Substance: LETROZOLE
     Dosage: UNK
     Dates: start: 2016

REACTIONS (10)
  - Arterial spasm [Unknown]
  - Palpitations [Recovered/Resolved]
  - Skin discolouration [Not Recovered/Not Resolved]
  - Malaise [Recovered/Resolved]
  - Stomatitis [Not Recovered/Not Resolved]
  - Fatigue [Unknown]
  - Arthralgia [Unknown]
  - Constipation [Unknown]
  - White blood cell count decreased [Unknown]
  - Nerve injury [Unknown]

NARRATIVE: CASE EVENT DATE: 20200622
